FAERS Safety Report 22232076 (Version 1)
Quarter: 2023Q2

REPORT INFORMATION
  Report Type: Spontaneous
  Country: US (occurrence: US)
  Receive Date: 20230420
  Receipt Date: 20230420
  Transmission Date: 20230722
  Serious: No
  Sender: FDA-Public Use
  Company Number: US-PTx-2022000051

PATIENT
  Sex: Male

DRUGS (4)
  1. LEUKINE [Suspect]
     Active Substance: SARGRAMOSTIM
     Indication: Prostate cancer
     Dosage: 1ML BACTERIOSTATIC WATER PER VIAL,INJECT 500 MCG (2 VIALS) UNDER THE SKIN DAILY FOR 15 DAYS/MONTH
     Route: 058
     Dates: start: 20210319
  2. PREDNISONE [Concomitant]
     Active Substance: PREDNISONE
     Indication: Product used for unknown indication
     Route: 065
  3. STERILE WATER BACT (30ML=1VL) [Concomitant]
     Indication: Product used for unknown indication
     Dosage: (30ML=1VL)
     Route: 065
  4. ZYTIGA [Concomitant]
     Active Substance: ABIRATERONE ACETATE
     Indication: Product used for unknown indication
     Route: 065

REACTIONS (1)
  - Injection site erythema [Not Recovered/Not Resolved]
